FAERS Safety Report 4683283-2 (Version None)
Quarter: 2005Q2

REPORT INFORMATION
  Report Type: 
  Country: None (occurrence: None)
  Receive Date: 20050606
  Receipt Date: 20050606
  Transmission Date: 20051028
  Serious: Yes (Other)
  Sender: FDA-Public Use
  Company Number: None

PATIENT
  Age: 36 Year
  Sex: Male
  Weight: 57.1532 kg

DRUGS (2)
  1. GABAPENTIN [Suspect]
     Indication: FIBROMYALGIA
     Dosage: 400 - 600 MG  4-5 TIMES/WK ORAL
     Route: 048
     Dates: start: 20030101, end: 20050606
  2. GABAPENTIN [Suspect]
     Indication: PAIN
     Dosage: 400 - 600 MG  4-5 TIMES/WK ORAL
     Route: 048
     Dates: start: 20030101, end: 20050606

REACTIONS (4)
  - DRUG ABUSER [None]
  - DRUG DEPENDENCE [None]
  - DRUG EFFECT DECREASED [None]
  - EUPHORIC MOOD [None]
